FAERS Safety Report 7272639-X (Version None)
Quarter: 2011Q1

REPORT INFORMATION
  Report Type: 
  Country: None (occurrence: None)
  Receive Date: 20110203
  Receipt Date: 20110125
  Transmission Date: 20110831
  Serious: Yes (Other)
  Sender: FDA-Public Use
  Company Number: BR-ASTRAZENECA-2011SE05028

PATIENT
  Sex: Female
  Weight: 70 kg

DRUGS (5)
  1. ATACAND HCT [Suspect]
     Indication: HYPERTENSION
     Dosage: 16/12.5 MG WITH UNKNOWN FREQUENCY
     Route: 048
     Dates: start: 20101201, end: 20110101
  2. CARBAMAZEPINA [Concomitant]
     Indication: EPILEPSY
     Dates: start: 20000101
  3. EDHANOL [Concomitant]
     Indication: PETIT MAL EPILEPSY
     Route: 048
     Dates: start: 20000101
  4. EDHANOL [Concomitant]
     Indication: EPILEPSY
     Route: 048
     Dates: start: 20000101
  5. CARBAMAZEPINA [Concomitant]
     Indication: PETIT MAL EPILEPSY
     Dates: start: 20000101

REACTIONS (3)
  - DRUG INEFFECTIVE [None]
  - RECTAL CANCER [None]
  - BLOOD PRESSURE INCREASED [None]
